FAERS Safety Report 5342721-2 (Version None)
Quarter: 2007Q2

REPORT INFORMATION
  Report Type: 
  Country: None (occurrence: None)
  Receive Date: 20070601
  Receipt Date: 20070522
  Transmission Date: 20071010
  Serious: Yes (Other)
  Sender: FDA-Public Use
  Company Number: BR-PFIZER INC-2007041450

PATIENT
  Sex: Female

DRUGS (2)
  1. DETRUSITOL LA [Suspect]
     Indication: URINARY INCONTINENCE
     Route: 048
     Dates: start: 20060301, end: 20061101
  2. DETRUSITOL [Suspect]
     Indication: URINARY INCONTINENCE
     Route: 048
     Dates: start: 20060301, end: 20061101

REACTIONS (2)
  - DEPRESSION [None]
  - SURGERY [None]
